FAERS Safety Report 9201108 (Version 2)
Quarter: 2013Q2

REPORT INFORMATION
  Report Type: Spontaneous
  Country: JP (occurrence: JP)
  Receive Date: 20130401
  Receipt Date: 20130405
  Transmission Date: 20140414
  Serious: Yes (Hospitalization)
  Sender: FDA-Public Use
  Company Number: JP-009507513-1303JPN013614

PATIENT
  Age: 50 Year
  Sex: Male
  Weight: 103 kg

DRUGS (11)
  1. DEXAMETHASONE [Suspect]
     Indication: DEXAMETHASONE SUPPRESSION TEST
     Dosage: 1 MG, ONCE
     Route: 048
     Dates: start: 20130207, end: 20130207
  2. DEXAMETHASONE [Suspect]
     Dosage: 8 MG, ONCE
     Route: 048
     Dates: start: 20130211, end: 20130211
  3. LASIX (FUROSEMIDE) [Suspect]
     Indication: RENAL FAILURE CHRONIC
     Dosage: 60 MG DAILY
     Route: 048
     Dates: start: 20130207, end: 20130221
  4. MICARDIS [Concomitant]
     Dosage: 40 MG DAILY
     Route: 048
  5. ARTIST [Concomitant]
     Dosage: 5 MG DAILY
     Route: 048
  6. DIART [Concomitant]
     Dosage: 90 MG DAILY
     Route: 048
  7. BAYASPIRIN [Concomitant]
     Dosage: 100 MG DAILY
     Route: 048
  8. URSO [Concomitant]
     Dosage: 30 MG DAILY
     Route: 048
     Dates: start: 20130225
  9. LIPITOR [Concomitant]
     Dosage: 10 MG DAILY
     Route: 048
  10. NOVORAPID [Concomitant]
     Route: 058
  11. LANTUS [Concomitant]
     Dosage: 16 IU DAILY
     Route: 058

REACTIONS (1)
  - Hepatic function abnormal [Recovered/Resolved]
